FAERS Safety Report 5398262-X (Version None)
Quarter: 2007Q3

REPORT INFORMATION
  Report Type: 
  Country: None (occurrence: None)
  Receive Date: 20070726
  Receipt Date: 20070717
  Transmission Date: 20080115
  Serious: Yes (Hospitalization, Other)
  Sender: FDA-Public Use
  Company Number: US-PFIZER INC-2007059745

PATIENT
  Sex: Male

DRUGS (2)
  1. CHANTIX [Suspect]
     Indication: SMOKING CESSATION THERAPY
     Dates: start: 20070620, end: 20070101
  2. DILANTIN KAPSEAL [Interacting]
     Indication: CONVULSION

REACTIONS (3)
  - ANTICONVULSANT DRUG LEVEL ABNORMAL [None]
  - DIZZINESS [None]
  - DRUG INTERACTION [None]
